FAERS Safety Report 7621291-X (Version None)
Quarter: 2011Q3

REPORT INFORMATION
  Report Type: 
  Country: None (occurrence: None)
  Receive Date: 20110719
  Receipt Date: 20110713
  Transmission Date: 20111222
  Serious: Yes (Hospitalization)
  Sender: FDA-Public Use
  Company Number: MX-SANOFI-AVENTIS-2011SA040550

PATIENT
  Age: 17 Year
  Sex: Female

DRUGS (1)
  1. INSULIN GLARGINE [Suspect]
     Route: 058
     Dates: start: 20030101, end: 20110706

REACTIONS (9)
  - LOSS OF CONSCIOUSNESS [None]
  - ABSCESS LIMB [None]
  - VOMITING [None]
  - DIABETIC KETOACIDOSIS [None]
  - FATIGUE [None]
  - ASTHENIA [None]
  - HYPERGLYCAEMIA [None]
  - SOMNOLENCE [None]
  - ARRHYTHMIA [None]
